FAERS Safety Report 5871643-3 (Version None)
Quarter: 2008Q3

REPORT INFORMATION
  Report Type: 
  Country: None (occurrence: None)
  Receive Date: 20080904
  Receipt Date: 20080904
  Transmission Date: 20090109
  Serious: Yes (Other)
  Sender: FDA-Public Use
  Company Number: None

PATIENT
  Sex: Female
  Weight: 86.1834 kg

DRUGS (1)
  1. METOPROLOL TARTRATE [Suspect]
     Indication: VENTRICULAR EXTRASYSTOLES
     Dosage: 25MG PO
     Route: 048

REACTIONS (5)
  - CONDITION AGGRAVATED [None]
  - HEADACHE [None]
  - NAUSEA [None]
  - PALPITATIONS [None]
  - VOMITING [None]
